FAERS Safety Report 18590682 (Version 1)
Quarter: 2020Q4

REPORT INFORMATION
  Report Type: Spontaneous
  Country: US (occurrence: US)
  Receive Date: 20201208
  Receipt Date: 20201208
  Transmission Date: 20210114
  Serious: Yes (Other)
  Sender: FDA-Public Use
  Company Number: US-ADAMAS PHARMA, LLC-2020ADA02766

PATIENT
  Sex: Male

DRUGS (5)
  1. ARICEPT [Concomitant]
     Active Substance: DONEPEZIL HYDROCHLORIDE
  2. LEVODOPA [Concomitant]
     Active Substance: LEVODOPA
  3. AMANTADINE. [Suspect]
     Active Substance: AMANTADINE HYDROCHLORIDE
  4. MYRBETRIQ [Suspect]
     Active Substance: MIRABEGRON
     Indication: PARKINSON^S DISEASE
  5. OTHER UNSPECIFIED MEDICATIONS [Concomitant]
     Active Substance: UNSPECIFIED INGREDIENT

REACTIONS (5)
  - Knee arthroplasty [Unknown]
  - Fall [Unknown]
  - Confusional state [Unknown]
  - Memory impairment [Unknown]
  - Dizziness [Not Recovered/Not Resolved]

NARRATIVE: CASE EVENT DATE: 2018
